FAERS Safety Report 6678604-5 (Version None)
Quarter: 2010Q2

REPORT INFORMATION
  Report Type: 
  Country: None (occurrence: None)
  Receive Date: 20100412
  Receipt Date: 20100412
  Transmission Date: 20101027
  Serious: Yes (Life-Threatening, Hospitalization)
  Sender: FDA-Public Use
  Company Number: None

PATIENT
  Age: 59 Year
  Sex: Male
  Weight: 142.5 kg

DRUGS (2)
  1. WARFARIN SODIUM [Suspect]
     Indication: PROPHYLAXIS
     Dosage: 5MG PO QD
     Route: 048
  2. PLAVIX [Suspect]
     Dosage: 75 MG PO QD

REACTIONS (4)
  - INTERNATIONAL NORMALISED RATIO INCREASED [None]
  - PANCREATITIS [None]
  - RENAL FAILURE ACUTE [None]
  - UPPER GASTROINTESTINAL HAEMORRHAGE [None]
